FAERS Safety Report 8598750-9 (Version None)
Quarter: 2012Q3

REPORT INFORMATION
  Report Type: 
  Country: None (occurrence: None)
  Receive Date: 20120806
  Receipt Date: 20120806
  Transmission Date: 20120928
  Serious: No
  Sender: FDA-Public Use
  Company Number: None

PATIENT
  Age: 74 Year
  Sex: Female

DRUGS (8)
  1. FUROSEMIDE [Concomitant]
  2. ALPRAZOLAM [Concomitant]
  3. WARFARIN SODIUM [Concomitant]
  4. TRACLEER [Concomitant]
  5. LEVOTHROID [Concomitant]
  6. ATENOLOL [Concomitant]
  7. ALLOPURINOL [Concomitant]
  8. LETAIRIS [Suspect]
     Indication: PULMONARY HYPERTENSION
     Dosage: 10MG DAILY ORALLY
     Route: 048
     Dates: start: 20120601, end: 20120701

REACTIONS (2)
  - SWELLING [None]
  - WEIGHT INCREASED [None]
